FAERS Safety Report 9100871 (Version 3)
Quarter: 2013Q1

REPORT INFORMATION
  Report Type: Spontaneous
  Country: US (occurrence: US)
  Receive Date: 20130215
  Receipt Date: 20130228
  Transmission Date: 20140127
  Serious: Yes (Hospitalization)
  Sender: FDA-Public Use
  Company Number: US-ROCHE-1191011

PATIENT
  Age: 47 Year
  Sex: Female

DRUGS (7)
  1. PEGASYS [Suspect]
     Indication: CHRONIC HEPATITIS C
     Route: 058
     Dates: start: 20130121, end: 20130204
  2. PEGASYS [Suspect]
     Route: 058
     Dates: start: 20130218
  3. RIBAVIRIN [Suspect]
     Indication: CHRONIC HEPATITIS C
     Route: 065
     Dates: start: 20130121, end: 20130204
  4. RIBAVIRIN [Suspect]
     Route: 065
     Dates: start: 20130218
  5. TELAPREVIR [Suspect]
     Indication: CHRONIC HEPATITIS C
     Route: 065
     Dates: start: 20130121, end: 20130204
  6. TELAPREVIR [Suspect]
     Route: 065
     Dates: start: 20130218
  7. GABAPENTIN [Concomitant]
     Indication: PAIN

REACTIONS (8)
  - Unevaluable event [Unknown]
  - Dysstasia [Unknown]
  - Malaise [Unknown]
  - Gastroenteritis viral [Unknown]
  - White blood cell count decreased [Unknown]
  - Injection site bruising [Unknown]
  - Back pain [Unknown]
  - Abdominal discomfort [Unknown]
